FAERS Safety Report 13861204 (Version 2)
Quarter: 2017Q3

REPORT INFORMATION
  Report Type: Spontaneous
  Country: DE (occurrence: DE)
  Receive Date: 20170811
  Receipt Date: 20170817
  Transmission Date: 20171127
  Serious: Yes (Hospitalization)
  Sender: FDA-Public Use
  Company Number: DE-SA-2017SA143229

PATIENT
  Sex: Female

DRUGS (2)
  1. CLEXANE [Suspect]
     Active Substance: ENOXAPARIN SODIUM
     Indication: THROMBOSIS PROPHYLAXIS
     Route: 058
  2. UTROGEST [Concomitant]
     Active Substance: PROGESTERONE
     Indication: PROPHYLAXIS OF ABORTION
     Dosage: TILL 20 PREGNANCY WEEK, FORM: CAB
     Route: 065

REACTIONS (3)
  - Exposure during pregnancy [Unknown]
  - Drug effect incomplete [Unknown]
  - Thrombophlebitis superficial [Unknown]

NARRATIVE: CASE EVENT DATE: 201707
